FAERS Safety Report 5422235-1 (Version None)
Quarter: 2007Q3

REPORT INFORMATION
  Report Type: 
  Country: None (occurrence: None)
  Receive Date: 20070821
  Receipt Date: 20070821
  Transmission Date: 20080115
  Serious: Yes (Other)
  Sender: FDA-Public Use
  Company Number: None

PATIENT
  Sex: Female

DRUGS (1)
  1. GEODON [Suspect]
     Indication: PSYCHOTIC DISORDER
     Dosage: 80 MG BID PO
     Route: 048
     Dates: start: 20061129, end: 20070808

REACTIONS (6)
  - BRUXISM [None]
  - COGWHEEL RIGIDITY [None]
  - DRY MOUTH [None]
  - DYSKINESIA [None]
  - TONGUE DISORDER [None]
  - TRISMUS [None]
